FAERS Safety Report 21491356 (Version 7)
Quarter: 2023Q2

REPORT INFORMATION
  Report Type: Spontaneous
  Country: US (occurrence: US)
  Receive Date: 20221021
  Receipt Date: 20230613
  Transmission Date: 20230721
  Serious: Yes (Other)
  Sender: FDA-Public Use
  Company Number: US-PFIZER INC-PV202200086597

PATIENT
  Age: 61 Year
  Sex: Female

DRUGS (1)
  1. XELJANZ [Suspect]
     Active Substance: TOFACITINIB CITRATE
     Dosage: UNK

REACTIONS (11)
  - Rheumatoid arthritis [Unknown]
  - Drug ineffective [Unknown]
  - Intentional dose omission [Unknown]
  - Peripheral swelling [Unknown]
  - Generalised oedema [Unknown]
  - Condition aggravated [Unknown]
  - Diarrhoea [Unknown]
  - Dry mouth [Unknown]
  - Nasopharyngitis [Unknown]
  - Limb discomfort [Unknown]
  - COVID-19 [Unknown]

NARRATIVE: CASE EVENT DATE: 20221201
